FAERS Safety Report 12311807 (Version 1)
Quarter: 2016Q2

REPORT INFORMATION
  Report Type: Spontaneous
  Country: LK (occurrence: LK)
  Receive Date: 20160427
  Receipt Date: 20160427
  Transmission Date: 20160902
  Serious: Yes (Death, Hospitalization, Other)
  Sender: FDA-Public Use
  Company Number: LK-PFIZER INC-2015461939

PATIENT
  Age: 36 Year
  Sex: Male

DRUGS (5)
  1. METHYLPREDNISOLONE SODIUM SUCCINATE. [Suspect]
     Active Substance: METHYLPREDNISOLONE SODIUM SUCCINATE
     Indication: MYOCARDITIS INFECTIOUS
     Dosage: UNK
     Route: 042
  2. AMIODARONE HCL [Suspect]
     Active Substance: AMIODARONE HYDROCHLORIDE
     Indication: ATRIAL FIBRILLATION
     Dosage: UNK
     Route: 042
  3. LEVOFLOXACIN. [Suspect]
     Active Substance: LEVOFLOXACIN
     Indication: MYOCARDITIS INFECTIOUS
     Dosage: UNK
     Route: 042
  4. DIGOXIN. [Suspect]
     Active Substance: DIGOXIN
     Indication: ATRIAL FIBRILLATION
     Dosage: UNK
     Route: 065
  5. MEROPENEM. [Suspect]
     Active Substance: MEROPENEM
     Indication: MYOCARDITIS INFECTIOUS
     Dosage: UNK
     Route: 042

REACTIONS (13)
  - Leptospirosis [Fatal]
  - Drug ineffective [Unknown]
  - Aspartate aminotransferase increased [Unknown]
  - Atrial fibrillation [Unknown]
  - Ventricular tachycardia [Fatal]
  - Respiratory distress [Unknown]
  - Thrombocytopenia [Unknown]
  - Blood creatinine increased [Unknown]
  - Alanine aminotransferase increased [Unknown]
  - Leptospira test positive [Unknown]
  - Cardiogenic shock [Unknown]
  - Myocarditis [Fatal]
  - Disease progression [Fatal]
